FAERS Safety Report 4994509-X (Version None)
Quarter: 2006Q2

REPORT INFORMATION
  Report Type: 
  Country: None (occurrence: None)
  Receive Date: 20060505
  Receipt Date: 20051011
  Transmission Date: 20061013
  Serious: Yes (Hospitalization, Disabling)
  Sender: FDA-Public Use
  Company Number: US-MERCK-0510USA06911

PATIENT
  Age: 66 Year
  Sex: Male
  Weight: 84 kg

DRUGS (5)
  1. VIOXX [Suspect]
     Indication: ARTHRITIS
     Route: 048
     Dates: start: 20011204, end: 20030901
  2. ACIPHEX [Concomitant]
     Indication: GASTROOESOPHAGEAL REFLUX DISEASE
     Route: 065
  3. ASPIRIN [Concomitant]
     Route: 065
  4. GLUCOSAMINE [Concomitant]
     Route: 065
  5. PRILOSEC [Concomitant]
     Route: 048

REACTIONS (7)
  - BENIGN PROSTATIC HYPERPLASIA [None]
  - CORONARY ARTERY DISEASE [None]
  - DIABETES MELLITUS NON-INSULIN-DEPENDENT [None]
  - DYSPNOEA EXERTIONAL [None]
  - ERECTILE DYSFUNCTION [None]
  - HYPERTENSION [None]
  - MYOCARDIAL INFARCTION [None]
